FAERS Safety Report 15823631 (Version 1)
Quarter: 2019Q1

REPORT INFORMATION
  Report Type: Report from Study
  Country: US (occurrence: US)
  Receive Date: 20190114
  Receipt Date: 20190114
  Transmission Date: 20190417
  Serious: Yes (Other)
  Sender: FDA-Public Use
  Company Number: US-ACTELION-A-NJ2019-184827

PATIENT
  Age: 59 Year
  Sex: Female

DRUGS (4)
  1. TRACLEER [Suspect]
     Active Substance: BOSENTAN
     Indication: MORPHOEA
     Dosage: 62.5 MG, BID
     Route: 048
     Dates: start: 20161112
  2. VITAMIN D [Concomitant]
     Active Substance: CHOLECALCIFEROL
  3. SILDENAFIL. [Concomitant]
     Active Substance: SILDENAFIL
  4. MUCINEX [Concomitant]
     Active Substance: GUAIFENESIN

REACTIONS (3)
  - Product dose omission [Unknown]
  - Breast cancer [Unknown]
  - Stress [Unknown]
